FAERS Safety Report 7753104-X (Version None)
Quarter: 2011Q3

REPORT INFORMATION
  Report Type: 
  Country: None (occurrence: None)
  Receive Date: 20110915
  Receipt Date: 20110912
  Transmission Date: 20111222
  Serious: Yes (Other)
  Sender: FDA-Public Use
  Company Number: DE-BRISTOL-MYERS SQUIBB COMPANY-15920622

PATIENT
  Age: 39 Year
  Sex: Male
  Weight: 104 kg

DRUGS (1)
  1. ABILIFY [Suspect]
     Indication: TOURETTE'S DISORDER
     Dates: start: 20110722, end: 20110726

REACTIONS (6)
  - VISION BLURRED [None]
  - PARAESTHESIA [None]
  - BLOOD GLUCOSE INCREASED [None]
  - SPEECH DISORDER [None]
  - WEIGHT INCREASED [None]
  - RESTLESSNESS [None]
